FAERS Safety Report 8068188-1 (Version None)
Quarter: 2012Q1

REPORT INFORMATION
  Report Type: 
  Country: None (occurrence: None)
  Receive Date: 20120124
  Receipt Date: 20110929
  Transmission Date: 20120608
  Serious: No
  Sender: FDA-Public Use
  Company Number: US-AMGEN-USASP2011050512

PATIENT
  Age: 82 Year
  Sex: Female

DRUGS (4)
  1. PERCOCET [Concomitant]
     Dosage: UNK
  2. TOPROL-XL [Concomitant]
     Dosage: UNK
  3. PROLIA [Suspect]
     Indication: OSTEOPENIA
     Dosage: UNK UNK, Q6MO
     Route: 058
     Dates: start: 20110421
  4. ACETAMINOPHEN [Concomitant]
     Dosage: UNK

REACTIONS (4)
  - PAIN IN EXTREMITY [None]
  - FAECAL INCONTINENCE [None]
  - MOBILITY DECREASED [None]
  - BACK PAIN [None]
